FAERS Safety Report 5108001-5 (Version None)
Quarter: 2006Q3

REPORT INFORMATION
  Report Type: 
  Country: None (occurrence: None)
  Receive Date: 20060914
  Receipt Date: 20060907
  Transmission Date: 20061208
  Serious: Yes (Death, Hospitalization, Other)
  Sender: FDA-Public Use
  Company Number: 163-C5013-06040020

PATIENT
  Age: 70 Year
  Sex: Male

DRUGS (14)
  1. CC-5013 (LENALIDOMIDE) (CAPSULES) [Suspect]
     Indication: MULTIPLE MYELOMA
     Dosage: 25 MG, QD, ORAL
     Route: 048
     Dates: start: 20060324, end: 20060328
  2. CC-5013 (LENALIDOMIDE) (CAPSULES) [Suspect]
     Indication: MULTIPLE MYELOMA
     Dosage: 25 MG, QD, ORAL
     Route: 048
     Dates: start: 20060407, end: 20060412
  3. DEXAMETHASONE TAB [Suspect]
     Indication: MULTIPLE MYELOMA
     Dosage: 4 MG, MONDAY, WEDNESDAY, AND FRIDAY, ORAL
     Route: 048
  4. MAGNESIUM (MAGNESIUM) [Concomitant]
  5. ASPIRIN [Concomitant]
  6. TOPROL-XL [Concomitant]
  7. NORVASC [Concomitant]
  8. PRILOSEC [Concomitant]
  9. ALTASE (RAMIPRIL) [Concomitant]
  10. HYTRIN [Concomitant]
  11. AREDIA [Concomitant]
  12. IMDUR [Concomitant]
  13. COUMADIN [Concomitant]
  14. PROCRIT [Concomitant]

REACTIONS (19)
  - ANAEMIA [None]
  - ASTHENIA [None]
  - BLOOD CREATININE INCREASED [None]
  - BLOOD PHOSPHORUS INCREASED [None]
  - BLOOD PRESSURE DIASTOLIC DECREASED [None]
  - EJECTION FRACTION DECREASED [None]
  - FLUID OVERLOAD [None]
  - GENERAL PHYSICAL CONDITION ABNORMAL [None]
  - HAEMODIALYSIS [None]
  - HYPERKALAEMIA [None]
  - HYPOCALCAEMIA [None]
  - HYPOPHOSPHATAEMIA [None]
  - HYPOTENSION [None]
  - MALIGNANT NEOPLASM PROGRESSION [None]
  - MULTIPLE MYELOMA [None]
  - PLEURAL EFFUSION [None]
  - RENAL FAILURE ACUTE [None]
  - RENAL FAILURE CHRONIC [None]
  - SKIN NECROSIS [None]
